FAERS Safety Report 7708750-6 (Version None)
Quarter: 2011Q3

REPORT INFORMATION
  Report Type: 
  Country: None (occurrence: None)
  Receive Date: 20110825
  Receipt Date: 20110825
  Transmission Date: 20111222
  Serious: Yes (Other)
  Sender: FDA-Public Use
  Company Number: None

PATIENT
  Age: 49 Year
  Sex: Female
  Weight: 106.14 kg

DRUGS (1)
  1. PHENTERMINE [Suspect]
     Indication: WEIGHT CONTROL
     Dosage: 37.5MG
     Route: 048
     Dates: start: 20110716, end: 20110722

REACTIONS (3)
  - CARDIAC MURMUR [None]
  - MITRAL VALVE INCOMPETENCE [None]
  - TRICUSPID VALVE INCOMPETENCE [None]
